FAERS Safety Report 9819861 (Version 1)
Quarter: 2013Q1

REPORT INFORMATION
  Report Type: Spontaneous
  Country: US (occurrence: None)
  Receive Date: 20130107
  Receipt Date: 20130107
  Transmission Date: 20140127
  Serious: No
  Sender: FDA-Public Use
  Company Number: PHEH2012US019227

PATIENT
  Sex: Female
  Weight: 52.2 kg

DRUGS (7)
  1. GILENYA (FTY) CAPSULE, 0.5MG [Suspect]
     Route: 048
  2. CALCIUM (CALCIUM) TABLET [Concomitant]
  3. MULTIPLE VITAMINS (ASCORBIC ACID, ERGOCALCIFEROL, FOLIC ACID, RETINOL, TOCOPHEROL, VITAMIN B NOS) TABLET [Concomitant]
  4. TOPIRAMATE (TOPIRAMATE) CAPSULE, 25 MG [Concomitant]
  5. PERCOCET (OXYCODONE HYDROCHLORIDE, PARACETAMOL) TABLET [Concomitant]
  6. PROZAC (FLUOXETINE HYDROCHLORIDE) CAPSULE, 10 MG [Concomitant]
  7. SPRINTEC (ETHINYLESTRAIOL, NORGESTIMATE) TABLET [Concomitant]

REACTIONS (1)
  - Tremor [None]
